FAERS Safety Report 6603162-0 (Version None)
Quarter: 2010Q1

REPORT INFORMATION
  Report Type: 
  Country: None (occurrence: None)
  Receive Date: 20100226
  Receipt Date: 20100219
  Transmission Date: 20100710
  Serious: Yes (Hospitalization)
  Sender: FDA-Public Use
  Company Number: PHHY2010MX10067

PATIENT
  Age: 58 Year
  Sex: Female

DRUGS (3)
  1. RASILEZ [Suspect]
     Indication: HYPERTENSION
     Dosage: 1 TABLET (150 MG) PER DAY
  2. RASILEZ [Suspect]
     Dosage: 1/2 TABLET (160 MG) PER DAY AT NIGHT
  3. NEXIUM [Concomitant]

REACTIONS (4)
  - FEELING DRUNK [None]
  - HEART RATE INCREASED [None]
  - SURGERY [None]
  - UMBILICAL HERNIA [None]
